FAERS Safety Report 5421251-3 (Version None)
Quarter: 2007Q3

REPORT INFORMATION
  Report Type: 
  Country: None (occurrence: None)
  Receive Date: 20070719
  Receipt Date: 20070117
  Transmission Date: 20080115
  Serious: Yes (Hospitalization)
  Sender: FDA-Public Use
  Company Number: OMPQ-PR-0610S-1477

PATIENT
  Age: 45 Year
  Sex: Male

DRUGS (2)
  1. OMNIPAQUE 140 [Suspect]
     Indication: HYPOAESTHESIA
     Dosage: 20 ML, SINGLE DOSE, I.T.
     Route: 037
     Dates: start: 20061023, end: 20061023
  2. OMNIPAQUE 140 [Suspect]
     Indication: MUSCULOSKELETAL PAIN
     Dosage: 20 ML, SINGLE DOSE, I.T.
     Route: 037
     Dates: start: 20061023, end: 20061023

REACTIONS (1)
  - MENINGITIS BACTERIAL [None]
